FAERS Safety Report 20263077 (Version 1)
Quarter: 2021Q4

REPORT INFORMATION
  Report Type: Spontaneous
  Country: JP (occurrence: JP)
  Receive Date: 20211231
  Receipt Date: 20211231
  Transmission Date: 20220303
  Serious: Yes (Hospitalization, Other)
  Sender: FDA-Public Use
  Company Number: JP-JNJFOC-20200200069

PATIENT
  Age: 42 Year
  Sex: Female
  Weight: 57 kg

DRUGS (4)
  1. TRABECTEDIN [Suspect]
     Active Substance: TRABECTEDIN
     Indication: Leiomyosarcoma metastatic
     Dosage: 2 CYCLES
     Route: 041
     Dates: start: 20191119, end: 20191210
  2. DENOSUMAB [Concomitant]
     Active Substance: DENOSUMAB
     Route: 065
     Dates: start: 20190409, end: 20191128
  3. OXYCODONE [Concomitant]
     Active Substance: OXYCODONE
     Dates: start: 20190213, end: 20191130
  4. NAPROXEN [Concomitant]
     Active Substance: NAPROXEN
     Dates: start: 20190910, end: 20200114

REACTIONS (6)
  - Electrocardiogram QT prolonged [Recovered/Resolved]
  - Cardiomyopathy [Unknown]
  - Blood creatine phosphokinase increased [Recovered/Resolved]
  - Myalgia [Recovered/Resolved]
  - Oedema peripheral [Recovered/Resolved]
  - Hepatic enzyme increased [Recovering/Resolving]

NARRATIVE: CASE EVENT DATE: 20191126
